FAERS Safety Report 5999866-3 (Version None)
Quarter: 2008Q4

REPORT INFORMATION
  Report Type: 
  Country: None (occurrence: None)
  Receive Date: 20081215
  Receipt Date: 20080114
  Transmission Date: 20090506
  Serious: No
  Sender: FDA-Public Use
  Company Number: US-AMGEN-KDL229924

PATIENT
  Sex: Female

DRUGS (2)
  1. ENBREL [Suspect]
     Indication: RHEUMATOID ARTHRITIS
     Route: 058
     Dates: start: 20070517, end: 20071001
  2. METHOTREXATE [Concomitant]
     Dates: start: 20020101

REACTIONS (10)
  - ARTHRITIS [None]
  - BACK PAIN [None]
  - COUGH [None]
  - DRUG INEFFECTIVE [None]
  - FATIGUE [None]
  - LUNG INFECTION [None]
  - MOBILITY DECREASED [None]
  - NASAL CONGESTION [None]
  - RESORPTION BONE INCREASED [None]
  - RHINORRHOEA [None]
